FAERS Safety Report 4651282-2 (Version None)
Quarter: 2005Q2

REPORT INFORMATION
  Report Type: 
  Country: None (occurrence: None)
  Receive Date: 20050503
  Receipt Date: 20050425
  Transmission Date: 20051028
  Serious: Yes (Hospitalization)
  Sender: FDA-Public Use
  Company Number: DE-BRISTOL-MYERS SQUIBB COMPANY-12951844

PATIENT
  Age: 59 Year
  Sex: Male

DRUGS (7)
  1. HOLOXAN [Suspect]
     Indication: SARCOMA
     Dates: start: 20050421, end: 20050421
  2. DOXORUBICIN HCL [Suspect]
     Indication: SARCOMA
  3. UROMITEXAN [Concomitant]
  4. ALLOPURINOL [Concomitant]
  5. LASIX [Concomitant]
  6. PROPANOLOL HYDROCHLORIDE [Concomitant]
  7. MOVICOL [Concomitant]

REACTIONS (1)
  - ENCEPHALOPATHY [None]
